FAERS Safety Report 11756396 (Version 1)
Quarter: 2015Q4

REPORT INFORMATION
  Report Type: Spontaneous
  Country: US (occurrence: US)
  Receive Date: 20151119
  Receipt Date: 20151119
  Transmission Date: 20160304
  Serious: No
  Sender: FDA-Public Use
  Company Number: US-ALLERGAN-1508821US

PATIENT
  Sex: Male

DRUGS (3)
  1. LISINOPRIL. [Concomitant]
     Active Substance: LISINOPRIL
     Indication: HYPERTENSION
     Dosage: 5 MG, DAILY
     Dates: start: 201010
  2. TIMOLOL MALEATE. [Suspect]
     Active Substance: TIMOLOL MALEATE
     Indication: GLAUCOMA
     Dosage: 1 GTT TO EACH EYE, UNK
     Route: 047
     Dates: start: 2010, end: 2010
  3. COMBIGAN [Suspect]
     Active Substance: BRIMONIDINE TARTRATE\TIMOLOL MALEATE
     Indication: GLAUCOMA
     Dosage: 2 GTT TO EACH EYE, UNK
     Route: 047
     Dates: start: 2014

REACTIONS (2)
  - Tinnitus [Not Recovered/Not Resolved]
  - Skin hyperplasia [Not Recovered/Not Resolved]

NARRATIVE: CASE EVENT DATE: 2010
